FAERS Safety Report 6981522-6 (Version None)
Quarter: 2010Q3

REPORT INFORMATION
  Report Type: 
  Country: None (occurrence: None)
  Receive Date: 20100914
  Receipt Date: 20100903
  Transmission Date: 20110219
  Serious: Yes (Other)
  Sender: FDA-Public Use
  Company Number: PHHY2010JP58791

PATIENT

DRUGS (1)
  1. ZOMETA [Suspect]
     Route: 041

REACTIONS (2)
  - LOOSE TOOTH [None]
  - OSTEONECROSIS OF JAW [None]
